FAERS Safety Report 19410041 (Version 2)
Quarter: 2021Q2

REPORT INFORMATION
  Report Type: Spontaneous
  Country: JP (occurrence: JP)
  Receive Date: 20210614
  Receipt Date: 20210616
  Transmission Date: 20210717
  Serious: Yes (Death, Other)
  Sender: FDA-Public Use
  Company Number: JP-AMGEN-JPNSP2021090229

PATIENT
  Age: 71 Year
  Sex: Female

DRUGS (2)
  1. WARFARIN [WARFARIN POTASSIUM] [Concomitant]
     Active Substance: WARFARIN POTASSIUM
     Route: 048
  2. ROMIPLATE [Suspect]
     Active Substance: ROMIPLOSTIM
     Indication: IMMUNE THROMBOCYTOPENIA
     Dosage: 1 MILLIGRAM/KILOGRAM
     Route: 058
     Dates: start: 20210527, end: 20210527

REACTIONS (1)
  - Multiple organ dysfunction syndrome [Fatal]
